FAERS Safety Report 20364236 (Version 1)
Quarter: 2022Q1

REPORT INFORMATION
  Report Type: Spontaneous
  Country: US (occurrence: None)
  Receive Date: 20220121
  Receipt Date: 20220121
  Transmission Date: 20220423
  Serious: Yes (Hospitalization)
  Sender: FDA-Public Use
  Company Number: None

PATIENT
  Age: 83 Year
  Sex: Female
  Weight: 61.5 kg

DRUGS (1)
  1. PEMBROLIZUMAB [Suspect]
     Active Substance: PEMBROLIZUMAB
     Dates: end: 20211111

REACTIONS (5)
  - Dyspnoea [None]
  - Pneumonia [None]
  - Condition aggravated [None]
  - Pneumonitis [None]
  - Oxygen saturation decreased [None]

NARRATIVE: CASE EVENT DATE: 20220110
